FAERS Safety Report 23774890 (Version 1)
Quarter: 2024Q2

REPORT INFORMATION
  Report Type: Spontaneous
  Country: US (occurrence: None)
  Receive Date: 20240423
  Receipt Date: 20240423
  Transmission Date: 20240716
  Serious: Yes (Hospitalization)
  Sender: FDA-Public Use
  Company Number: None

PATIENT
  Age: 71 Year
  Sex: Male

DRUGS (3)
  1. MELOXICAM [Suspect]
     Active Substance: MELOXICAM
     Indication: Pain
     Dates: start: 20230518, end: 20230624
  2. ASPIRIN 81MG [Suspect]
     Active Substance: ASPIRIN
     Indication: Cerebrovascular accident
     Dosage: THERAPY STOPEEED ON 06/24/202
     Dates: start: 20190410
  3. ASPIRIN 81MG [Suspect]
     Active Substance: ASPIRIN
     Indication: Prophylaxis

REACTIONS (3)
  - Gastrointestinal haemorrhage [None]
  - Diabetic ketoacidosis [None]
  - Respiratory failure [None]

NARRATIVE: CASE EVENT DATE: 20230601
